FAERS Safety Report 17445282 (Version 3)
Quarter: 2020Q2

REPORT INFORMATION
  Report Type: Spontaneous
  Country: US (occurrence: US)
  Receive Date: 20200221
  Receipt Date: 20200519
  Transmission Date: 20200713
  Serious: No
  Sender: FDA-Public Use
  Company Number: US-PFIZER INC-2020078564

PATIENT
  Age: 63 Year
  Sex: Female

DRUGS (1)
  1. IBRANCE [Suspect]
     Active Substance: PALBOCICLIB
     Indication: BREAST CANCER FEMALE
     Dosage: 125 MG, CYCLIC (TAKE 1 CAPSULE EVERY DAY FOR 21 DAYS, THEN 7 DAYS OFF)
     Route: 048
     Dates: start: 202001

REACTIONS (5)
  - Pain [Recovered/Resolved]
  - Influenza like illness [Unknown]
  - Headache [Unknown]
  - Flushing [Unknown]
  - Rash [Unknown]

NARRATIVE: CASE EVENT DATE: 2020
